FAERS Safety Report 10789580 (Version 3)
Quarter: 2015Q3

REPORT INFORMATION
  Report Type: Spontaneous
  Country: DE (occurrence: CN)
  Receive Date: 20150212
  Receipt Date: 20150730
  Transmission Date: 20151125
  Serious: Yes (Death, Life-Threatening, Other)
  Sender: FDA-Public Use
  Company Number: DE-ACTELION-A-US2015-112754

PATIENT
  Age: 15 Year
  Sex: Male

DRUGS (7)
  1. DOBUTAMINE [Concomitant]
     Active Substance: DOBUTAMINE\DOBUTAMINE HYDROCHLORIDE
     Dosage: UNK
     Dates: start: 20141211, end: 20141211
  2. VENTAVIS [Suspect]
     Active Substance: ILOPROST
     Dosage: UNK
     Route: 042
  3. DIGOXIN. [Concomitant]
     Active Substance: DIGOXIN
     Dosage: UNK
     Dates: end: 20141211
  4. TRACLEER [Concomitant]
     Active Substance: BOSENTAN
     Indication: PULMONARY ARTERIAL HYPERTENSION
     Dosage: 125 MG, BID
  5. VENTAVIS [Suspect]
     Active Substance: ILOPROST
     Indication: PULMONARY ARTERIAL HYPERTENSION
     Dosage: UNK
     Route: 055
     Dates: start: 20141211, end: 20141211
  6. FUROSEMIDE. [Concomitant]
     Active Substance: FUROSEMIDE
     Dosage: UNK
     Dates: start: 20141211, end: 20141211
  7. TORASEMIDE [Concomitant]
     Active Substance: TORSEMIDE
     Dosage: UNK
     Dates: start: 20141211, end: 20141211

REACTIONS (17)
  - Epistaxis [Unknown]
  - Heart rate decreased [Unknown]
  - Cyanosis [Unknown]
  - Cardiac failure [Fatal]
  - Dyspnoea [Unknown]
  - Mouth haemorrhage [Unknown]
  - Palpitations [Unknown]
  - Heart rate increased [Unknown]
  - Ventricular tachycardia [Unknown]
  - Depressed level of consciousness [Unknown]
  - Product quality issue [Unknown]
  - Respiratory failure [Fatal]
  - Pulmonary hypertension [Fatal]
  - Ventricular fibrillation [Unknown]
  - Hyperhidrosis [Unknown]
  - Off label use [Unknown]
  - Incorrect route of drug administration [Unknown]
